FAERS Safety Report 21052735 (Version 1)
Quarter: 2022Q3

REPORT INFORMATION
  Report Type: Spontaneous
  Country: US (occurrence: US)
  Receive Date: 20220707
  Receipt Date: 20220707
  Transmission Date: 20221026
  Serious: Yes (Other)
  Sender: FDA-Public Use
  Company Number: US-SA-SAC20220704001987

PATIENT
  Age: 45 Year
  Sex: Female

DRUGS (1)
  1. ZANTAC [Suspect]
     Active Substance: RANITIDINE HYDROCHLORIDE
     Indication: Gastrooesophageal reflux disease
     Dosage: QD
     Route: 065
     Dates: start: 199801, end: 200612

REACTIONS (2)
  - Lung neoplasm malignant [Unknown]
  - Breast cancer female [Unknown]

NARRATIVE: CASE EVENT DATE: 20000101
